FAERS Safety Report 7759049-3 (Version None)
Quarter: 2011Q3

REPORT INFORMATION
  Report Type: 
  Country: None (occurrence: None)
  Receive Date: 20110915
  Receipt Date: 20110908
  Transmission Date: 20111222
  Serious: Yes (Hospitalization)
  Sender: FDA-Public Use
  Company Number: DKLU1072970

PATIENT
  Age: 1 Year
  Sex: Female

DRUGS (2)
  1. SABRIL [Suspect]
     Indication: INFANTILE SPASMS
     Dosage: 500 MG MILLIGRAM(S), 2 IN 1 D, ORAL 500 MG MILLIGRAM(S), QAM, ORAL
     Route: 048
     Dates: start: 20110101
  2. SABRIL [Suspect]
     Indication: INFANTILE SPASMS
     Dosage: 500 MG MILLIGRAM(S), 2 IN 1 D, ORAL 500 MG MILLIGRAM(S), QAM, ORAL
     Route: 048
     Dates: start: 20110101, end: 20110101

REACTIONS (7)
  - CONVULSION [None]
  - PAIN [None]
  - VIRAL INFECTION [None]
  - RESPIRATORY DISTRESS [None]
  - MUSCLE SPASMS [None]
  - CONDITION AGGRAVATED [None]
  - AGITATION [None]
